FAERS Safety Report 10194807 (Version 2)
Quarter: 2014Q2

REPORT INFORMATION
  Report Type: Spontaneous
  Country: GB (occurrence: GB)
  Receive Date: 20140526
  Receipt Date: 20140625
  Transmission Date: 20141212
  Serious: Yes (Other)
  Sender: FDA-Public Use
  Company Number: GB-AMGEN-GBRSP2014037223

PATIENT
  Age: 80 Year
  Sex: Male
  Weight: 64 kg

DRUGS (13)
  1. ARANESP [Suspect]
     Indication: ANAEMIA
     Dosage: 100 MUG, QMO
     Route: 058
     Dates: start: 2010
  2. ARANESP [Suspect]
     Dosage: 100 MUG, Q4WK
     Route: 058
     Dates: start: 20140320, end: 20140515
  3. ARANESP [Suspect]
     Dosage: 60 MUG, Q2WK
     Route: 058
     Dates: start: 20140613
  4. ASPIRIN [Concomitant]
     Dosage: 150 MG, UNK
  5. AMLODIPINE [Concomitant]
     Indication: HYPERTENSION
     Dosage: 10 MG, QD
     Route: 048
     Dates: start: 20110819
  6. ATORVASTATIN [Concomitant]
     Indication: PROPHYLAXIS
     Dosage: 20 MG, QD
     Route: 048
     Dates: start: 20130409
  7. BISOPROLOL [Concomitant]
     Indication: HYPERTENSION
     Dosage: 5 MG, QD
     Route: 048
     Dates: start: 20140103
  8. DOXAZOSIN [Concomitant]
     Indication: HYPERTENSION
     Dosage: 4 MG, QD
     Route: 048
     Dates: start: 20140310
  9. FUROSEMIDE [Concomitant]
     Indication: HYPERTENSION
     Dosage: 80 MG, QD
     Route: 048
     Dates: start: 20140107
  10. PREDNISOLONE [Concomitant]
     Indication: MYALGIA
     Dosage: 2 MG, QD
     Dates: start: 20110819
  11. GLICLAZIDE [Concomitant]
     Indication: DIABETES MELLITUS
     Dosage: 40 MG, QD
     Dates: start: 20140407
  12. PARACETAMOL [Concomitant]
     Indication: MYALGIA
     Dosage: 1-2, QHS
     Dates: start: 20110819
  13. TELMISARTAN [Concomitant]
     Indication: HYPERTENSION
     Dosage: 80 MG, QD
     Dates: start: 20110819

REACTIONS (11)
  - Transient ischaemic attack [Not Recovered/Not Resolved]
  - Drug ineffective [Unknown]
  - Rash macular [Not Recovered/Not Resolved]
  - Malaise [Not Recovered/Not Resolved]
  - Decreased appetite [Not Recovered/Not Resolved]
  - Skin disorder [Not Recovered/Not Resolved]
  - Dry skin [Recovering/Resolving]
  - Erythema [Not Recovered/Not Resolved]
  - Rosacea [Recovering/Resolving]
  - Lethargy [Not Recovered/Not Resolved]
  - Rash [Unknown]
